FAERS Safety Report 4848927-0 (Version None)
Quarter: 2005Q4

REPORT INFORMATION
  Report Type: 
  Country: None (occurrence: None)
  Receive Date: 20051208
  Receipt Date: 20050718
  Transmission Date: 20060501
  Serious: Yes (Hospitalization, Other)
  Sender: FDA-Public Use
  Company Number: US-MERCK-0507USA02277

PATIENT
  Age: 67 Year
  Sex: Male
  Weight: 130 kg

DRUGS (6)
  1. VIOXX [Suspect]
     Indication: ARTHRITIS
     Route: 048
     Dates: start: 20010101, end: 20040101
  2. VIOXX [Suspect]
     Indication: ARTHRALGIA
     Route: 048
     Dates: start: 20010101, end: 20040101
  3. CARDIZEM CD [Concomitant]
     Route: 065
  4. PREVACID [Concomitant]
     Route: 065
  5. FLOMAX [Concomitant]
     Route: 065
  6. ALLEGRA [Concomitant]
     Route: 065

REACTIONS (7)
  - CEREBROVASCULAR ACCIDENT [None]
  - CORONARY ARTERY DISEASE [None]
  - DYSPNOEA [None]
  - GLUCOSE TOLERANCE IMPAIRED [None]
  - HYPERTENSIVE HEART DISEASE [None]
  - JOINT SWELLING [None]
  - OEDEMA PERIPHERAL [None]
